FAERS Safety Report 8072870-X (Version None)
Quarter: 2011Q4

REPORT INFORMATION
  Report Type: 
  Country: None (occurrence: None)
  Receive Date: 20111221
  Receipt Date: 20110928
  Transmission Date: 20120403
  Serious: Yes (Hospitalization)
  Sender: FDA-Public Use
  Company Number: PHEH2011US03445

PATIENT
  Age: 23 Year
  Sex: Female
  Weight: 57.1 kg

DRUGS (4)
  1. FOLIC ACID [Concomitant]
  2. HYDROXYUREA [Concomitant]
  3. LORTAB [Concomitant]
  4. EXJADE [Suspect]
     Indication: IRON OVERLOAD
     Dosage: 500 MG, BID, ORAL
     Route: 048

REACTIONS (3)
  - PAIN [None]
  - VASCULAR OCCLUSION [None]
  - SICKLE CELL ANAEMIA WITH CRISIS [None]
